FAERS Safety Report 22151678 (Version 3)
Quarter: 2023Q2

REPORT INFORMATION
  Report Type: Report from Study
  Country: US (occurrence: US)
  Receive Date: 20230329
  Receipt Date: 20230630
  Transmission Date: 20230721
  Serious: Yes (Other)
  Sender: FDA-Public Use
  Company Number: US-ABBVIE-4706788

PATIENT
  Sex: Female

DRUGS (2)
  1. RINVOQ [Suspect]
     Active Substance: UPADACITINIB
     Indication: Rheumatoid arthritis
     Dosage: FORM STRENGTH: 15 MILLIGRAM?LAST ADMIN DATE 2023
     Route: 048
     Dates: start: 20230217
  2. RINVOQ [Suspect]
     Active Substance: UPADACITINIB
     Indication: Rheumatoid arthritis
     Dosage: DRUG START DATE-2023, FORM STRENGTH: 15 MILLIGRAM
     Route: 048

REACTIONS (6)
  - Surgery [Unknown]
  - Pain [Recovering/Resolving]
  - Procedural pain [Unknown]
  - Blood cholesterol increased [Unknown]
  - Drug ineffective [Unknown]
  - General physical condition abnormal [Unknown]

NARRATIVE: CASE EVENT DATE: 20230101
